FAERS Safety Report 8498607-8 (Version None)
Quarter: 2012Q3

REPORT INFORMATION
  Report Type: 
  Country: None (occurrence: None)
  Receive Date: 20120709
  Receipt Date: 20120627
  Transmission Date: 20120928
  Serious: No
  Sender: FDA-Public Use
  Company Number: US-AMGEN-USASP2012039886

PATIENT
  Age: 53 Year
  Sex: Female

DRUGS (1)
  1. ENBREL [Suspect]
     Indication: ANKYLOSING SPONDYLITIS
     Dosage: UNK

REACTIONS (4)
  - GAIT DISTURBANCE [None]
  - SCAR [None]
  - ANKYLOSING SPONDYLITIS [None]
  - FUNGAL INFECTION [None]
